FAERS Safety Report 20655252 (Version 2)
Quarter: 2022Q3

REPORT INFORMATION
  Report Type: Report from Study
  Country: ES (occurrence: ES)
  Receive Date: 20220330
  Receipt Date: 20220804
  Transmission Date: 20221026
  Serious: Yes (Death, Other)
  Sender: FDA-Public Use
  Company Number: ES-GLAXOSMITHKLINE-ESCH2022GSK012337

PATIENT

DRUGS (1)
  1. IBUPROFEN [Suspect]
     Active Substance: IBUPROFEN
     Indication: Product used for unknown indication
     Dosage: UNK

REACTIONS (1)
  - Pulmonary haemorrhage neonatal [Fatal]
